FAERS Safety Report 9301913 (Version 2)
Quarter: 2013Q3

REPORT INFORMATION
  Report Type: Report from Study
  Country: JP (occurrence: JP)
  Receive Date: 20130521
  Receipt Date: 20130926
  Transmission Date: 20140515
  Serious: Yes (Death)
  Sender: FDA-Public Use
  Company Number: JP-UCBSA-085966

PATIENT
  Age: 70 Year
  Sex: Male

DRUGS (2)
  1. E KEPPRA [Suspect]
     Indication: PARTIAL SEIZURES WITH SECONDARY GENERALISATION
     Route: 048
     Dates: start: 20121002, end: 20121106
  2. TEGRETOL [Concomitant]
     Indication: PARTIAL SEIZURES WITH SECONDARY GENERALISATION
     Dosage: DAILY DOSE : 200 MG
     Route: 048
     Dates: start: 20121003, end: 20121106

REACTIONS (1)
  - Hepatic cirrhosis [Fatal]
